FAERS Safety Report 10796645 (Version 1)
Quarter: 2015Q1

REPORT INFORMATION
  Report Type: Spontaneous
  Country: US (occurrence: US)
  Receive Date: 20150216
  Receipt Date: 20150216
  Transmission Date: 20150721
  Serious: No
  Sender: FDA-Public Use
  Company Number: US-ASTRAZENECA-2015SE12632

PATIENT
  Sex: Female

DRUGS (9)
  1. RHINOCORT AQUA [Suspect]
     Active Substance: BUDESONIDE
     Indication: UPPER-AIRWAY COUGH SYNDROME
     Dosage: ONE SPRAY IN EACH NOSTRIL ONCE DAILY
     Route: 045
     Dates: start: 2014, end: 2014
  2. RHINOCORT AQUA [Suspect]
     Active Substance: BUDESONIDE
     Indication: EAR INFECTION
     Dosage: 2 SQUIRTS IN EACH NOSTRIL ONCE DAILY
     Route: 045
     Dates: start: 2014, end: 2014
  3. RHINOCORT AQUA [Suspect]
     Active Substance: BUDESONIDE
     Indication: UPPER-AIRWAY COUGH SYNDROME
     Dosage: 2 SQUIRTS IN EACH NOSTRIL ONCE DAILY
     Route: 045
     Dates: start: 2014, end: 2014
  4. RHINOCORT AQUA [Suspect]
     Active Substance: BUDESONIDE
     Indication: UPPER-AIRWAY COUGH SYNDROME
     Dosage: ONE SPRAY IN EACH NOSTRIL ONCE DAILY
     Route: 045
     Dates: end: 20150129
  5. RHINOCORT AQUA [Suspect]
     Active Substance: BUDESONIDE
     Indication: EAR INFECTION
     Dosage: ONE SPRAY IN EACH NOSTRIL ONCE DAILY
     Route: 045
     Dates: start: 2014, end: 2014
  6. RHINOCORT AQUA [Suspect]
     Active Substance: BUDESONIDE
     Indication: UPPER-AIRWAY COUGH SYNDROME
     Dosage: 2 SQUIRTS IN EACH NOSTRIL ONCE DAILY
     Route: 045
     Dates: start: 2012, end: 2014
  7. RHINOCORT AQUA [Suspect]
     Active Substance: BUDESONIDE
     Indication: EAR INFECTION
     Dosage: ONE SPRAY IN EACH NOSTRIL ONCE DAILY
     Route: 045
     Dates: end: 20150129
  8. RHINOCORT AQUA [Suspect]
     Active Substance: BUDESONIDE
     Indication: EAR INFECTION
     Dosage: 2 SQUIRTS IN EACH NOSTRIL ONCE DAILY
     Route: 045
     Dates: start: 2012, end: 2014
  9. NASACORT [Suspect]
     Active Substance: TRIAMCINOLONE ACETONIDE
     Route: 065
     Dates: start: 2014

REACTIONS (7)
  - Nasal congestion [Unknown]
  - Drug dose omission [Unknown]
  - Sinus congestion [Recovered/Resolved]
  - Eye colour change [Recovered/Resolved]
  - Intentional product misuse [Unknown]
  - Intentional product misuse [Unknown]
  - Feeling abnormal [Unknown]

NARRATIVE: CASE EVENT DATE: 2012
